FAERS Safety Report 13149178 (Version 1)
Quarter: 2017Q1

REPORT INFORMATION
  Report Type: Spontaneous
  Country: US (occurrence: US)
  Receive Date: 20170125
  Receipt Date: 20170125
  Transmission Date: 20170428
  Serious: Yes (Hospitalization, Other)
  Sender: FDA-Public Use
  Company Number: US-OTSUKA-02100-USA-03-0610

PATIENT
  Age: 75 Year
  Sex: Female

DRUGS (5)
  1. PLETAL [Suspect]
     Active Substance: CILOSTAZOL
     Dosage: UNK
     Route: 065
  2. CELEBREX [Suspect]
     Active Substance: CELECOXIB
     Indication: ARTHRITIS
     Dosage: UNK
     Dates: end: 20030913
  3. PLETAL [Suspect]
     Active Substance: CILOSTAZOL
     Indication: INTERMITTENT CLAUDICATION
     Dosage: 50 MG, QD
     Route: 048
     Dates: start: 200307, end: 200308
  4. PLETAL [Suspect]
     Active Substance: CILOSTAZOL
     Dosage: 50 MG, BID
     Route: 048
     Dates: start: 200308, end: 20030911
  5. PLETAL [Suspect]
     Active Substance: CILOSTAZOL
     Dosage: UNK
     Route: 065

REACTIONS (2)
  - Dyspnoea [Unknown]
  - Cardiac failure congestive [Recovered/Resolved]

NARRATIVE: CASE EVENT DATE: 20030911
